FAERS Safety Report 13427255 (Version 1)
Quarter: 2017Q2

REPORT INFORMATION
  Report Type: Report from Study
  Country: AR (occurrence: AR)
  Receive Date: 20170411
  Receipt Date: 20170411
  Transmission Date: 20170830
  Serious: Yes (Death, Hospitalization, Other)
  Sender: FDA-Public Use
  Company Number: PHHY2017AR038055

PATIENT
  Age: 92 Year
  Sex: Female

DRUGS (5)
  1. SINTROM [Suspect]
     Active Substance: ACENOCOUMAROL
     Dosage: 4 MG (BETWEEN 6 OR 7 MONTHS AGO)
     Route: 065
  2. LEVOTHYROXINE. [Concomitant]
     Active Substance: LEVOTHYROXINE
     Indication: GOITRE
     Dosage: 1 DF, QD
     Route: 065
  3. DIOVAN [Suspect]
     Active Substance: VALSARTAN
     Indication: ARRHYTHMIA
     Dosage: 160 OT, BID (START APPROXIMATELY 2 YEARS AGO)
     Route: 065
  4. SINTROM [Suspect]
     Active Substance: ACENOCOUMAROL
     Indication: ARRHYTHMIA
     Dosage: 4 MG (LONG TIME AGO TO 6 YEARS AGO)
     Route: 065
  5. RAQUIFEROL [Concomitant]
     Indication: GOITRE
     Route: 065

REACTIONS (12)
  - Nosocomial infection [Fatal]
  - Hypotension [Fatal]
  - Hip fracture [Recovering/Resolving]
  - Product use in unapproved indication [Unknown]
  - Urinary tract infection [Fatal]
  - Arrhythmia [Unknown]
  - Drug prescribing error [Unknown]
  - Disorientation [Unknown]
  - Sepsis [Fatal]
  - Asthenia [Unknown]
  - Viral upper respiratory tract infection [Unknown]
  - Breath sounds abnormal [Unknown]

NARRATIVE: CASE EVENT DATE: 20170222
